FAERS Safety Report 18319683 (Version 2)
Quarter: 2020Q4

REPORT INFORMATION
  Report Type: Other
  Country: KR (occurrence: KR)
  Receive Date: 20200929
  Receipt Date: 20201023
  Transmission Date: 20210113
  Serious: Yes (Hospitalization)
  Sender: FDA-Public Use
  Company Number: KR-ROCHE-2580334

PATIENT
  Age: 62 Year
  Sex: Male
  Weight: 53.3 kg

DRUGS (26)
  1. ATEZOLIZUMAB. [Suspect]
     Active Substance: ATEZOLIZUMAB
     Route: 042
     Dates: start: 20200706
  2. CARBOPLATIN. [Suspect]
     Active Substance: CARBOPLATIN
     Route: 042
     Dates: start: 20200319
  3. ETOPOSIDE. [Suspect]
     Active Substance: ETOPOSIDE
     Dosage: DAY 1
     Route: 042
     Dates: start: 20200409
  4. ATEZOLIZUMAB. [Suspect]
     Active Substance: ATEZOLIZUMAB
     Route: 042
     Dates: start: 20200319
  5. CARBOPLATIN. [Suspect]
     Active Substance: CARBOPLATIN
     Route: 042
     Dates: start: 20200504
  6. ETOPOSIDE. [Suspect]
     Active Substance: ETOPOSIDE
     Dosage: DAY 2
     Route: 042
     Dates: start: 20200228
  7. ETOPOSIDE. [Suspect]
     Active Substance: ETOPOSIDE
     Dosage: DAY 3
     Route: 042
     Dates: start: 20200506
  8. ATEZOLIZUMAB. [Suspect]
     Active Substance: ATEZOLIZUMAB
     Indication: SMALL CELL LUNG CANCER
     Route: 042
     Dates: start: 20200227
  9. ATEZOLIZUMAB. [Suspect]
     Active Substance: ATEZOLIZUMAB
     Route: 042
     Dates: start: 20200615
  10. ETOPOSIDE. [Suspect]
     Active Substance: ETOPOSIDE
     Dosage: DAY 2
     Route: 042
     Dates: start: 20200320
  11. CARBOPLATIN. [Suspect]
     Active Substance: CARBOPLATIN
     Route: 042
     Dates: start: 20200409
  12. ETOPOSIDE. [Suspect]
     Active Substance: ETOPOSIDE
     Dosage: DAY 3
     Route: 042
     Dates: start: 20200411
  13. ETOPOSIDE. [Suspect]
     Active Substance: ETOPOSIDE
     Dosage: DAY 1
     Route: 042
     Dates: start: 20200504
  14. ETOPOSIDE. [Suspect]
     Active Substance: ETOPOSIDE
     Dosage: DAY 2
     Route: 042
     Dates: start: 20200505
  15. ATEZOLIZUMAB. [Suspect]
     Active Substance: ATEZOLIZUMAB
     Route: 042
     Dates: start: 20200818
  16. ETOPOSIDE. [Suspect]
     Active Substance: ETOPOSIDE
     Dosage: DAY 2
     Route: 042
     Dates: start: 20200410
  17. ATEZOLIZUMAB. [Suspect]
     Active Substance: ATEZOLIZUMAB
     Route: 042
     Dates: start: 20200525
  18. ETOPOSIDE. [Suspect]
     Active Substance: ETOPOSIDE
     Dosage: DAY 3
     Route: 042
     Dates: start: 20200229
  19. ETOPOSIDE. [Suspect]
     Active Substance: ETOPOSIDE
     Dosage: DAY 3
     Route: 042
     Dates: start: 20200321
  20. ATEZOLIZUMAB. [Suspect]
     Active Substance: ATEZOLIZUMAB
     Route: 042
     Dates: start: 20200727
  21. ATEZOLIZUMAB. [Suspect]
     Active Substance: ATEZOLIZUMAB
     Route: 042
     Dates: start: 20200908
  22. ETOPOSIDE. [Suspect]
     Active Substance: ETOPOSIDE
     Dosage: DAY 1
     Route: 042
     Dates: start: 20200319
  23. ATEZOLIZUMAB. [Suspect]
     Active Substance: ATEZOLIZUMAB
     Route: 042
     Dates: start: 20200409
  24. ATEZOLIZUMAB. [Suspect]
     Active Substance: ATEZOLIZUMAB
     Route: 042
     Dates: start: 20200504
  25. CARBOPLATIN. [Suspect]
     Active Substance: CARBOPLATIN
     Indication: SMALL CELL LUNG CANCER
     Route: 042
     Dates: start: 20200227
  26. ETOPOSIDE. [Suspect]
     Active Substance: ETOPOSIDE
     Indication: SMALL CELL LUNG CANCER
     Dosage: SUBSEQUENTLY 28/FEB/2020, 19/MAR/2020, 20/MAR/2020, 09/APR/2020, 10/APR/2020, 04/MAY/2020
     Route: 042
     Dates: start: 20200227

REACTIONS (13)
  - Nausea [Recovering/Resolving]
  - Toothache [Recovering/Resolving]
  - Asthenia [Recovering/Resolving]
  - Abdominal pain lower [Recovered/Resolved]
  - Foreign body in eye [Recovering/Resolving]
  - Paraesthesia [Recovering/Resolving]
  - Dysphonia [Recovering/Resolving]
  - Decreased appetite [Recovered/Resolved]
  - Visual impairment [Recovering/Resolving]
  - Pruritus [Recovering/Resolving]
  - Dysuria [Recovering/Resolving]
  - Myalgia [Recovering/Resolving]
  - Decreased appetite [Recovering/Resolving]

NARRATIVE: CASE EVENT DATE: 20200401
